FAERS Safety Report 18710377 (Version 2)
Quarter: 2021Q1

REPORT INFORMATION
  Report Type: Spontaneous
  Country: US (occurrence: US)
  Receive Date: 20210107
  Receipt Date: 20210125
  Transmission Date: 20210419
  Serious: No
  Sender: FDA-Public Use
  Company Number: US-AMGEN INC.-USASP2021000638

PATIENT
  Age: 62 Year
  Sex: Female
  Weight: 48.07 kg

DRUGS (1)
  1. AIMOVIG [Suspect]
     Active Substance: ERENUMAB-AOOE
     Indication: MIGRAINE
     Dosage: 140 MILLIGRAM
     Route: 065
     Dates: start: 20190324

REACTIONS (3)
  - Wrong technique in product usage process [Unknown]
  - Injection site bruising [Unknown]
  - Increased tendency to bruise [Not Recovered/Not Resolved]

NARRATIVE: CASE EVENT DATE: 2020
